FAERS Safety Report 6397616-2 (Version None)
Quarter: 2009Q4

REPORT INFORMATION
  Report Type: 
  Country: None (occurrence: None)
  Receive Date: 20091012
  Receipt Date: 20091007
  Transmission Date: 20100525
  Serious: Yes (Other)
  Sender: FDA-Public Use
  Company Number: CHPA2009US20013

PATIENT
  Sex: Female
  Weight: 58.05 kg

DRUGS (5)
  1. VOLTAREN [Suspect]
     Indication: TENDON DISORDER
     Dosage: 4 G, TID
     Route: 061
     Dates: start: 20090908, end: 20091006
  2. QVAR 40 [Concomitant]
     Indication: ASTHMA
     Dosage: 1 PUFF EVERY MORNING
  3. SINGULAIR [Concomitant]
     Indication: ASTHMA
     Dosage: 10 MG, QHS
     Route: 048
  4. NASONEX [Concomitant]
     Indication: ASTHMA
     Dosage: 1 SPRAY EACH NOSTRIL IN THE MORNING
  5. ALBUTEROL [Concomitant]
     Indication: ASTHMA
     Dosage: INHALER/NEBULIZER PRN

REACTIONS (6)
  - HEADACHE [None]
  - NECK PAIN [None]
  - OFF LABEL USE [None]
  - PYREXIA [None]
  - URTICARIA [None]
  - VIRAL INFECTION [None]
